FAERS Safety Report 6646079-8 (Version None)
Quarter: 2010Q1

REPORT INFORMATION
  Report Type: 
  Country: None (occurrence: None)
  Receive Date: 20100323
  Receipt Date: 20091027
  Transmission Date: 20100710
  Serious: Yes (Death)
  Sender: FDA-Public Use
  Company Number: PHEH2009US18955

PATIENT
  Age: 79 Year
  Sex: Male
  Weight: 65.306 kg

DRUGS (8)
  1. GLEEVEC [Suspect]
     Indication: CHRONIC MYELOID LEUKAEMIA
     Dosage: 400 MG, QD
     Dates: start: 20090601
  2. DIVALPROEX SODIUM [Concomitant]
  3. FERROUS SULFATE TAB [Concomitant]
  4. GEMFIBROZIL [Concomitant]
  5. METOPROLOL TARTRATE [Concomitant]
  6. PAROXETINE HCL [Concomitant]
  7. WARFARIN SODIUM [Concomitant]
  8. ARICEPT [Concomitant]

REACTIONS (1)
  - CEREBROVASCULAR ACCIDENT [None]
